FAERS Safety Report 16165440 (Version 1)
Quarter: 2019Q2

REPORT INFORMATION
  Report Type: Report from Study
  Country: US (occurrence: US)
  Receive Date: 20190405
  Receipt Date: 20190405
  Transmission Date: 20190711
  Serious: Yes (Hospitalization)
  Sender: FDA-Public Use
  Company Number: US-GILEAD-2019-0400336

PATIENT
  Age: 48 Year
  Sex: Female

DRUGS (1)
  1. LEDIPASVIR/SOFOSBUVIR [Suspect]
     Active Substance: LEDIPASVIR\SOFOSBUVIR
     Indication: CHRONIC HEPATITIS C
     Dosage: 90/400MG, ORAL, ONCE DAILY
     Route: 048
     Dates: start: 201902

REACTIONS (4)
  - Urticaria [Unknown]
  - Swollen tongue [Unknown]
  - Dyspnoea [Unknown]
  - Swelling face [Unknown]
